FAERS Safety Report 7662864-8 (Version None)
Quarter: 2011Q3

REPORT INFORMATION
  Report Type: 
  Country: None (occurrence: None)
  Receive Date: 20110805
  Receipt Date: 20101013
  Transmission Date: 20111222
  Serious: No
  Sender: FDA-Public Use
  Company Number: US-ABBOTT-10P-163-0663671-00

PATIENT
  Sex: Male
  Weight: 81.72 kg

DRUGS (11)
  1. ANALAPRIL [Concomitant]
     Indication: HYPERTENSION
  2. VIAGRA [Concomitant]
     Indication: PULMONARY HYPERTENSION
  3. NIASPAN [Suspect]
     Indication: CORONARY ARTERY BYPASS
     Dates: start: 20100701
  4. ASPIRIN [Concomitant]
     Indication: PROPHYLAXIS
  5. NIASPAN [Suspect]
     Indication: HIGH DENSITY LIPOPROTEIN DECREASED
  6. NIASPAN [Suspect]
     Indication: PULMONARY HYPERTENSION
  7. NORVASC [Concomitant]
     Indication: HYPERTENSION
  8. PLAVIX [Concomitant]
     Indication: CORONARY ARTERIAL STENT INSERTION
  9. LASIX [Concomitant]
     Indication: HYPERTENSION
  10. POTASSIUM [Concomitant]
     Indication: ELECTROLYTE SUBSTITUTION THERAPY
  11. METOPROLOL TARTRATE [Concomitant]
     Indication: HYPERTENSION

REACTIONS (2)
  - TACHYCARDIA [None]
  - BLOOD PRESSURE INCREASED [None]
